FAERS Safety Report 9783277 (Version 2)
Quarter: 2014Q1

REPORT INFORMATION
  Report Type: Spontaneous
  Country: NO (occurrence: NO)
  Receive Date: 20131226
  Receipt Date: 20140213
  Transmission Date: 20141002
  Serious: Yes (Other)
  Sender: FDA-Public Use
  Company Number: NO-PFIZER INC-2013367154

PATIENT
  Age: 76 Year
  Sex: Female

DRUGS (1)
  1. LYRICA [Suspect]
     Indication: NEURALGIA
     Dosage: 75 MG IN THE MORNING AND 75-150 MG IN THE EVENING
     Route: 048
     Dates: start: 201106

REACTIONS (3)
  - Cataract [Unknown]
  - Corneal oedema [Recovering/Resolving]
  - Eye irritation [Unknown]
